FAERS Safety Report 4462496-9 (Version None)
Quarter: 2004Q3

REPORT INFORMATION
  Report Type: 
  Country: None (occurrence: None)
  Receive Date: 20040924
  Receipt Date: 20040908
  Transmission Date: 20050211
  Serious: Yes (Other)
  Sender: FDA-Public Use
  Company Number: M2004-1282

PATIENT
  Age: 66 Year
  Sex: Male

DRUGS (5)
  1. RIMACTANE [Suspect]
     Indication: PNEUMONIA LEGIONELLA
     Dates: start: 20010101, end: 20011205
  2. MEROPENEM TRIHYDRATE, UNKNOWN MANUFACTURER [Suspect]
     Indication: PNEUMONIA LEGIONELLA
     Dates: start: 20011128, end: 20011205
  3. IMMUNE GLOBULIN INTRAVENOUS (HUMAN) [Concomitant]
  4. FLUCONAZOLE [Concomitant]
  5. METHYLPREDNISOLONE [Concomitant]

REACTIONS (4)
  - CHOLESTASIS [None]
  - CONDITION AGGRAVATED [None]
  - INTERSTITIAL LUNG DISEASE [None]
  - RESPIRATORY FAILURE [None]
